FAERS Safety Report 13576835 (Version 1)
Quarter: 2017Q2

REPORT INFORMATION
  Report Type: Spontaneous
  Country: US (occurrence: US)
  Receive Date: 20170524
  Receipt Date: 20170524
  Transmission Date: 20170830
  Serious: Yes (Other)
  Sender: FDA-Public Use
  Company Number: US-LPDUSPRD-20170664

PATIENT
  Age: 19 Year
  Sex: Male

DRUGS (3)
  1. TACROLIMUS. [Suspect]
     Active Substance: TACROLIMUS
     Route: 065
  2. PHENYTOIN SODIUM INJECTION (40042-009-02) [Suspect]
     Active Substance: PHENYTOIN SODIUM
     Route: 065
  3. TOPIRAMATE. [Suspect]
     Active Substance: TOPIRAMATE
     Route: 065

REACTIONS (2)
  - Drug interaction [Unknown]
  - Immunosuppressant drug level decreased [Unknown]
